FAERS Safety Report 8916849 (Version 3)
Quarter: 2014Q1

REPORT INFORMATION
  Report Type: Report from Study
  Country: TH (occurrence: TH)
  Receive Date: 20121120
  Receipt Date: 20140327
  Transmission Date: 20141002
  Serious: Yes (Death, Hospitalization)
  Sender: FDA-Public Use
  Company Number: TH-ROCHE-1147542

PATIENT
  Age: 61 Year
  Sex: Male
  Weight: 70.9 kg

DRUGS (29)
  1. RITUXIMAB [Suspect]
     Indication: DIFFUSE LARGE B-CELL LYMPHOMA
     Dosage: LAST DOSE TAKEN 500 ML, LAST DOSE CONCENTRATION TAKEN 1.35 MG/ML, LAST DOSE TAKEN ON 09/OCT/2012
     Route: 042
     Dates: start: 20120807
  2. CYCLOPHOSPHAMIDE [Suspect]
     Indication: DIFFUSE LARGE B-CELL LYMPHOMA
     Dosage: LAST DOSE TAKEN 1357.5 MG, LAST DOSE TAKEN ON 09/OCT/2012
     Route: 042
     Dates: start: 20120807
  3. DOXORUBICIN [Suspect]
     Indication: DIFFUSE LARGE B-CELL LYMPHOMA
     Dosage: LAST DOSE TAKEN 90 MG, LAST DOSE TAKEN ON 09/OCT/2012
     Route: 042
     Dates: start: 20120807
  4. VINCRISTINE [Suspect]
     Indication: DIFFUSE LARGE B-CELL LYMPHOMA
     Dosage: LAST DOSE TAKEN 2 MG, LAST DOSE TAKEN ON 09/OCT/2012
     Route: 042
     Dates: start: 20120807
  5. PREDNISONE [Suspect]
     Indication: DIFFUSE LARGE B-CELL LYMPHOMA
     Dosage: LAST DOSE TAKEN 100 MG, LAST DOSE TAKEN ON 13/OCT/2012
     Route: 048
     Dates: start: 20120807
  6. OMEPRAZOLE [Concomitant]
     Indication: PROPHYLAXIS
     Route: 065
     Dates: start: 20121023, end: 20121107
  7. GLIPIZIDE [Concomitant]
     Indication: DIABETES MELLITUS
     Route: 065
     Dates: end: 20121107
  8. HUMULIN [Concomitant]
     Indication: DIABETES MELLITUS
     Route: 065
     Dates: end: 20121107
  9. HCTZ [Concomitant]
     Indication: HYPERTENSION
     Route: 065
     Dates: end: 20121009
  10. AMLODIPINE [Concomitant]
     Indication: HYPERTENSION
     Route: 065
     Dates: end: 20121009
  11. ENARIL [Concomitant]
     Indication: HYPERTENSION
     Route: 065
     Dates: end: 20121009
  12. PARACETAMOL [Concomitant]
     Indication: PREMEDICATION
     Route: 065
     Dates: start: 20120918, end: 20120918
  13. PARACETAMOL [Concomitant]
     Route: 065
     Dates: start: 20121009, end: 20121009
  14. BENADRYL (THAILAND) [Concomitant]
     Indication: PREMEDICATION
     Route: 065
     Dates: start: 20120918, end: 20120918
  15. BENADRYL (THAILAND) [Concomitant]
     Route: 065
     Dates: start: 20121009, end: 20121009
  16. ONSIA [Concomitant]
     Indication: PREMEDICATION
     Route: 065
     Dates: start: 20120918, end: 20120920
  17. ONSIA [Concomitant]
     Indication: PROPHYLAXIS
     Route: 065
     Dates: start: 20121009, end: 20121009
  18. ONSIA [Concomitant]
     Route: 065
     Dates: start: 20121009, end: 20121011
  19. DEXAMETHASONE [Concomitant]
     Indication: PREMEDICATION
     Route: 065
     Dates: start: 20120918, end: 20120918
  20. DEXAMETHASONE [Concomitant]
     Route: 065
     Dates: start: 20121009, end: 20121009
  21. MIRACID [Concomitant]
     Indication: PROPHYLAXIS
     Route: 065
     Dates: start: 20120918, end: 20120924
  22. MIRACID [Concomitant]
     Route: 065
     Dates: start: 20121009, end: 20121015
  23. MILK OF MAGNESIA [Concomitant]
     Indication: PROPHYLAXIS
     Route: 065
     Dates: start: 20120918, end: 20120922
  24. MILK OF MAGNESIA [Concomitant]
     Route: 065
     Dates: start: 20121009, end: 20121011
  25. METFORMIN [Concomitant]
     Indication: HYPERGLYCAEMIA
     Route: 065
     Dates: start: 20120918, end: 20121009
  26. SENOKOT [Concomitant]
     Indication: CONSTIPATION
     Route: 065
     Dates: start: 20121023, end: 20121023
  27. UNISON ENEMA [Concomitant]
     Indication: CONSTIPATION
     Route: 065
     Dates: start: 20121105, end: 20121105
  28. NORMAL SALINE [Concomitant]
     Indication: HYPOVOLAEMIA
     Route: 065
     Dates: start: 20121023, end: 20121106
  29. LASIX [Concomitant]
     Route: 065
     Dates: start: 20121019, end: 20121019

REACTIONS (3)
  - Cerebrovascular accident [Fatal]
  - Febrile neutropenia [Fatal]
  - Pneumonia [Fatal]
